FAERS Safety Report 8189910-X (Version None)
Quarter: 2012Q1

REPORT INFORMATION
  Report Type: 
  Country: None (occurrence: None)
  Receive Date: 20120307
  Receipt Date: 20120227
  Transmission Date: 20120608
  Serious: Yes (Hospitalization)
  Sender: FDA-Public Use
  Company Number: JP-JNJFOC-20111111211

PATIENT
  Sex: Male
  Weight: 53 kg

DRUGS (9)
  1. REMICADE [Suspect]
     Route: 042
     Dates: start: 20100726
  2. REMICADE [Suspect]
     Dosage: 3RD INFUSION
     Route: 042
     Dates: start: 20100830
  3. REMICADE [Suspect]
     Indication: CROHN'S DISEASE
     Dosage: FIRST INFUSION
     Route: 042
     Dates: start: 20100712
  4. TALION [Concomitant]
     Indication: POSTOPERATIVE CARE
     Route: 048
  5. LANSOPRAZOLE [Concomitant]
     Indication: CROHN'S DISEASE
     Dosage: 30 DF
     Route: 048
  6. IMURAN [Concomitant]
     Indication: CROHN'S DISEASE
     Route: 048
     Dates: start: 20100510, end: 20100726
  7. PENTASA [Concomitant]
     Indication: CROHN'S DISEASE
     Dosage: 3000 DF
     Route: 048
  8. MIYA BM [Concomitant]
     Indication: POSTOPERATIVE CARE
     Route: 048
  9. ALL OTHER THERAPEUTICS [Concomitant]
     Indication: POSTOPERATIVE CARE
     Dosage: 2 PAC
     Route: 048

REACTIONS (2)
  - DISSEMINATED TUBERCULOSIS [None]
  - LIVER DISORDER [None]
